FAERS Safety Report 6018741-1 (Version None)
Quarter: 2008Q4

REPORT INFORMATION
  Report Type: 
  Country: None (occurrence: None)
  Receive Date: 20081223
  Receipt Date: 20081217
  Transmission Date: 20090506
  Serious: Yes (Hospitalization, Other)
  Sender: FDA-Public Use
  Company Number: GB-GILEAD-2008-0019530

PATIENT
  Age: 40 Year
  Sex: Female

DRUGS (3)
  1. ATRIPLA [Suspect]
     Indication: HIV INFECTION
     Route: 048
  2. IMPLANON [Suspect]
     Indication: CONTRACEPTION
  3. SEPTRIN [Concomitant]
     Indication: PROPHYLAXIS
     Dates: start: 20080501

REACTIONS (3)
  - ABORTION [None]
  - DRUG INTERACTION [None]
  - PREGNANCY WITH IMPLANT CONTRACEPTIVE [None]
